FAERS Safety Report 4603001-3 (Version None)
Quarter: 2005Q2

REPORT INFORMATION
  Report Type: 
  Country: None (occurrence: None)
  Receive Date: 20050214
  Receipt Date: 20041220
  Transmission Date: 20051028
  Serious: No
  Sender: FDA-Public Use
  Company Number: USA041286716

PATIENT
  Sex: Male

DRUGS (2)
  1. CIALIS [Suspect]
     Indication: ERECTILE DYSFUNCTION
     Dosage: 20 MG/1 AS NEEDED
  2. GLUCOPHAGE [Concomitant]

REACTIONS (3)
  - BACK PAIN [None]
  - DYSPEPSIA [None]
  - NASAL CONGESTION [None]
